FAERS Safety Report 7504572-X (Version None)
Quarter: 2011Q2

REPORT INFORMATION
  Report Type: 
  Country: None (occurrence: None)
  Receive Date: 20110525
  Receipt Date: 20101103
  Transmission Date: 20111010
  Serious: Yes (Hospitalization)
  Sender: FDA-Public Use
  Company Number: US-KINGPHARMUSA00001-K201001362

PATIENT
  Age: 60 Year
  Sex: Female

DRUGS (1)
  1. TAPAZOLE [Suspect]
     Dosage: 20 MG, SINGLE
     Route: 048
     Dates: start: 20101027, end: 20101027

REACTIONS (2)
  - THROMBOCYTOPENIA [None]
  - PLATELET COUNT DECREASED [None]
